FAERS Safety Report 17741284 (Version 3)
Quarter: 2020Q2

REPORT INFORMATION
  Report Type: Report from Study
  Country: US (occurrence: US)
  Receive Date: 20200504
  Receipt Date: 20200610
  Transmission Date: 20200714
  Serious: Yes (Other)
  Sender: FDA-Public Use
  Company Number: NVSC2020US115542

PATIENT
  Age: 56 Year
  Sex: Male

DRUGS (1)
  1. COSENTYX [Suspect]
     Active Substance: SECUKINUMAB
     Indication: PSORIASIS
     Dosage: 300 MG, QMO
     Route: 058
     Dates: start: 202001

REACTIONS (5)
  - Malaise [Unknown]
  - Decreased appetite [Unknown]
  - Coronavirus infection [Unknown]
  - Asthenia [Unknown]
  - Weight decreased [Unknown]

NARRATIVE: CASE EVENT DATE: 202004
